FAERS Safety Report 9862012 (Version 1)
Quarter: 2014Q1

REPORT INFORMATION
  Report Type: Spontaneous
  Country: CH (occurrence: CH)
  Receive Date: 20140203
  Receipt Date: 20140203
  Transmission Date: 20141002
  Serious: Yes (Hospitalization)
  Sender: FDA-Public Use
  Company Number: CH-009507513-1401CHE013933

PATIENT
  Age: 65 Year
  Sex: Male

DRUGS (11)
  1. JANUMET [Suspect]
     Indication: TYPE 2 DIABETES MELLITUS
     Dosage: 1 DF, BID
     Route: 048
  2. CRESTOR [Suspect]
     Indication: HYPERCHOLESTEROLAEMIA
     Dosage: 10 MG, QD
     Route: 048
  3. TRIATEC (RAMIPRIL) [Suspect]
     Indication: ESSENTIAL HYPERTENSION
     Dosage: 2.5 MG, QD
     Route: 048
  4. ESIDREX [Suspect]
     Indication: ESSENTIAL HYPERTENSION
     Dosage: 25 MG, QD
     Route: 048
  5. METFIN [Suspect]
     Indication: TYPE 2 DIABETES MELLITUS
     Dosage: 500 MG, QD
     Route: 048
  6. DEPAKINE CHRONO [Suspect]
     Indication: GRAND MAL CONVULSION
     Dosage: 250 MG, BID
     Route: 048
  7. RIVOTRIL [Suspect]
     Indication: GRAND MAL CONVULSION
     Dosage: 1 MG, QD
     Route: 048
  8. ASPIRIN CARDIO [Concomitant]
     Indication: PERIPHERAL VASCULAR DISORDER
     Dosage: 100 MG, QD
     Route: 048
  9. AUGMENTIN [Concomitant]
     Indication: BRONCHOPNEUMONIA
     Dosage: 625 MG, TID
     Route: 041
     Dates: start: 20131108, end: 20131118
  10. PERENTEROL [Concomitant]
     Dosage: 250 MG, BID
     Route: 048
     Dates: start: 20131108, end: 20131119
  11. DAFALGAN [Concomitant]
     Dosage: 1 G, PRN
     Route: 048
     Dates: start: 20131108, end: 20131119

REACTIONS (1)
  - Fall [Recovered/Resolved]
